FAERS Safety Report 7493332-4 (Version None)
Quarter: 2011Q2

REPORT INFORMATION
  Report Type: 
  Country: None (occurrence: None)
  Receive Date: 20110520
  Receipt Date: 20110513
  Transmission Date: 20111010
  Serious: Yes (Other)
  Sender: FDA-Public Use
  Company Number: IE-PFIZER INC-2011074917

PATIENT
  Sex: Male

DRUGS (1)
  1. ZYVOX [Suspect]
     Indication: STAPHYLOCOCCAL INFECTION
     Dosage: 600 MG, 2X/DAY
     Route: 042
     Dates: start: 20080701

REACTIONS (4)
  - PSYCHOTIC DISORDER [None]
  - AGGRESSION [None]
  - CONFUSIONAL STATE [None]
  - MOOD ALTERED [None]
